FAERS Safety Report 8105935-4 (Version None)
Quarter: 2012Q1

REPORT INFORMATION
  Report Type: 
  Country: None (occurrence: None)
  Receive Date: 20120202
  Receipt Date: 20120124
  Transmission Date: 20120608
  Serious: No
  Sender: FDA-Public Use
  Company Number: US-BIOGENIDEC-2012BI002946

PATIENT
  Age: 20 Year
  Sex: Female

DRUGS (4)
  1. VALIUM [Concomitant]
     Indication: NEURALGIA
     Dates: start: 20110101
  2. TYSABRI [Suspect]
     Indication: MULTIPLE SCLEROSIS
     Route: 042
     Dates: start: 20111216
  3. ZANAFLEX [Concomitant]
     Indication: MUSCLE SPASMS
     Dates: start: 20110101
  4. LYRICA [Concomitant]
     Indication: NEURALGIA

REACTIONS (5)
  - JOINT STIFFNESS [None]
  - NAUSEA [None]
  - ARTHRALGIA [None]
  - VOMITING [None]
  - MALAISE [None]
